FAERS Safety Report 10003941 (Version 2)
Quarter: 2014Q1

REPORT INFORMATION
  Report Type: Spontaneous
  Country: BE (occurrence: BE)
  Receive Date: 20140312
  Receipt Date: 20140312
  Transmission Date: 20141002
  Serious: Yes (Life-Threatening, Hospitalization, Other)
  Sender: FDA-Public Use
  Company Number: PHHY2014BE023370

PATIENT
  Age: 65 Year
  Sex: Male

DRUGS (10)
  1. CERTICAN [Suspect]
     Indication: RENAL TRANSPLANT
     Dosage: 1 MG, BID
     Route: 048
     Dates: start: 201401, end: 20140203
  2. MYFORTIC [Concomitant]
     Indication: RENAL TRANSPLANT
     Dosage: 720 MG, BID
     Route: 048
  3. EMCONCOR [Concomitant]
     Dosage: 5 MG, QD
     Route: 048
  4. MAREVAN [Concomitant]
     Dosage: UNK UKN, UNK
     Route: 048
  5. SIMVASTATIN [Concomitant]
     Dosage: 20 MG, QD
     Route: 048
  6. D-CURE [Concomitant]
     Dosage: UNK UKN, BIW
  7. MOXONIDINE [Concomitant]
     Dosage: 0.4 MG, QD
     Route: 048
  8. TERAZOSABB [Concomitant]
     Dosage: 7 MG, QD
     Route: 048
  9. LANOXIN [Concomitant]
     Dosage: 0.125 MG, QW5
     Route: 048
  10. ZYLORIC [Concomitant]
     Dosage: 300 MG, QD
     Route: 048

REACTIONS (6)
  - Interstitial lung disease [Recovered/Resolved]
  - Dyspnoea [Recovered/Resolved]
  - General physical health deterioration [Unknown]
  - Pleural effusion [Unknown]
  - Oedema [Recovered/Resolved]
  - Aphthous stomatitis [Recovered/Resolved]
